FAERS Safety Report 13657486 (Version 1)
Quarter: 2017Q2

REPORT INFORMATION
  Report Type: Spontaneous
  Country: US (occurrence: US)
  Receive Date: 20170615
  Receipt Date: 20170615
  Transmission Date: 20170830
  Serious: Yes (Hospitalization, Other)
  Sender: FDA-Public Use
  Company Number: US-009507513-1706USA004531

PATIENT

DRUGS (1)
  1. KEYTRUDA [Suspect]
     Active Substance: PEMBROLIZUMAB
     Indication: HEAD AND NECK CANCER METASTATIC
     Dosage: ROUTE REPORTED AS INFUSION

REACTIONS (3)
  - Pneumonitis [Recovered/Resolved]
  - Adverse event [Unknown]
  - Malignant neoplasm progression [Recovered/Resolved]
